FAERS Safety Report 25699028 (Version 5)
Quarter: 2025Q4

REPORT INFORMATION
  Report Type: Spontaneous
  Country: US (occurrence: US)
  Receive Date: 20250819
  Receipt Date: 20251222
  Transmission Date: 20260117
  Serious: Yes (Disabling)
  Sender: JOHNSON AND JOHNSON
  Company Number: US-JNJFOC-20250819487

PATIENT
  Age: 47 Year
  Sex: Female
  Weight: 70.31 kg

DRUGS (6)
  1. SPRAVATO [Suspect]
     Active Substance: ESKETAMINE
     Indication: Depression
     Dosage: 84 MG, 28 TOTAL DOSES^
     Route: 045
     Dates: start: 20231207, end: 20251113
  2. SPRAVATO [Suspect]
     Active Substance: ESKETAMINE
     Dosage: ^56 MG, 3 TOTAL DOSES^
     Route: 045
     Dates: start: 20231128, end: 20231205
  3. ATIVAN [Concomitant]
     Active Substance: LORAZEPAM
     Indication: Anxiety
     Dosage: 1.5 AM, 1 QH 3 PRN
  4. Corticosteroid gel [Concomitant]
     Indication: Skin disorder
     Dosage: PRN
  5. RELPAX [Concomitant]
     Active Substance: ELETRIPTAN HYDROBROMIDE
     Indication: Product used for unknown indication
  6. STRATTERA [Concomitant]
     Active Substance: ATOMOXETINE HYDROCHLORIDE
     Indication: Product used for unknown indication

REACTIONS (17)
  - Dissociation [Recovering/Resolving]
  - Disturbance in attention [Recovering/Resolving]
  - Memory impairment [Recovering/Resolving]
  - Anxiety [Unknown]
  - Brain fog [Unknown]
  - Feeling abnormal [Unknown]
  - Bradyphrenia [Unknown]
  - Burning sensation [Unknown]
  - Sensory processing sensitivity [Unknown]
  - Impaired driving ability [Unknown]
  - Depressed mood [Unknown]
  - Off label use [Unknown]
  - Mental disorder [Unknown]
  - Confusional state [Unknown]
  - Device issue [Unknown]
  - Wrong patient received product [Unknown]
  - Wrong technique in product usage process [Unknown]

NARRATIVE: CASE EVENT DATE: 20250806
